FAERS Safety Report 24253787 (Version 2)
Quarter: 2024Q3

REPORT INFORMATION
  Report Type: Spontaneous
  Country: JP (occurrence: None)
  Receive Date: 20240827
  Receipt Date: 20240906
  Transmission Date: 20241016
  Serious: Yes (Death)
  Sender: ASTRAZENECA
  Company Number: 2024A193831

PATIENT
  Age: 83 Year
  Sex: Male

DRUGS (1)
  1. ONDEXXYA [Suspect]
     Active Substance: ANDEXANET ALFA
     Indication: Putamen haemorrhage
     Dosage: DOSE UNKNOWN
     Route: 042

REACTIONS (1)
  - Putamen haemorrhage [Fatal]
